FAERS Safety Report 5300330-5 (Version None)
Quarter: 2007Q2

REPORT INFORMATION
  Report Type: 
  Country: None (occurrence: None)
  Receive Date: 20070418
  Receipt Date: 20070405
  Transmission Date: 20071010
  Serious: Yes (Other)
  Sender: FDA-Public Use
  Company Number: PHBS2007BR06190

PATIENT
  Sex: Female

DRUGS (3)
  1. RIVOTRIL [Concomitant]
     Indication: INSOMNIA
     Dosage: 1 DF, QHS
     Route: 048
  2. TRILEPTAL [Suspect]
     Indication: FIBROMYALGIA
     Dosage: 2 TABLETS/DAY (600 MG/DAY)
     Route: 048
  3. TRILEPTAL [Suspect]
     Dosage: 450 MG/DAY (1.5 TABLETS/DAY)
     Route: 048

REACTIONS (8)
  - DRUG DEPENDENCE [None]
  - DYSKINESIA [None]
  - DYSPNOEA [None]
  - FACIAL SPASM [None]
  - LARYNGOSPASM [None]
  - MUSCLE SPASMS [None]
  - PAIN [None]
  - SPEECH DISORDER [None]
